FAERS Safety Report 11467442 (Version 2)
Quarter: 2015Q3

REPORT INFORMATION
  Report Type: Report from Study
  Country: NL (occurrence: NL)
  Receive Date: 20150908
  Receipt Date: 20150908
  Transmission Date: 20151125
  Serious: Yes (Other)
  Sender: FDA-Public Use
  Company Number: PHHY2015NL102772

PATIENT
  Age: 59 Year
  Sex: Male

DRUGS (1)
  1. SANDOSTATINE LAR [Suspect]
     Active Substance: OCTREOTIDE ACETATE
     Indication: NEUROENDOCRINE TUMOUR
     Dosage: 30MG/2ML, ONCE EVERY 3 WEEKS
     Route: 030

REACTIONS (2)
  - Constipation [Not Recovered/Not Resolved]
  - Faecal vomiting [Unknown]

NARRATIVE: CASE EVENT DATE: 20150822
